FAERS Safety Report 15471161 (Version 1)
Quarter: 2018Q4

REPORT INFORMATION
  Report Type: Other
  Country: DE (occurrence: DE)
  Receive Date: 20181006
  Receipt Date: 20181006
  Transmission Date: 20190205
  Serious: Yes (Hospitalization, Other)
  Sender: FDA-Public Use
  Company Number: DE-MACLEODS PHARMACEUTICALS US LTD-MAC2018017227

PATIENT

DRUGS (13)
  1. VENLAFAXINE [Suspect]
     Active Substance: VENLAFAXINE HYDROCHLORIDE
     Dosage: 112 MILLIGRAM, QD, TABLET
     Route: 048
     Dates: start: 20151024, end: 20151029
  2. VENLAFAXINE [Suspect]
     Active Substance: VENLAFAXINE HYDROCHLORIDE
     Dosage: 75 MILLIGRAM, QD, TABLET
     Route: 048
     Dates: start: 20151006, end: 20151007
  3. SEROQUEL [Concomitant]
     Active Substance: QUETIAPINE FUMARATE
     Indication: PRODUCT USED FOR UNKNOWN INDICATION
     Dosage: 100 MILLIGRAM, QD
     Route: 048
     Dates: start: 20150929, end: 20151021
  4. VENLAFAXINE [Suspect]
     Active Substance: VENLAFAXINE HYDROCHLORIDE
     Indication: PRODUCT USED FOR UNKNOWN INDICATION
     Dosage: 75 MILLIGRAM, QD,TABLET
     Route: 048
     Dates: start: 20151030, end: 20151102
  5. ABILIFY [Suspect]
     Active Substance: ARIPIPRAZOLE
     Indication: PRODUCT USED FOR UNKNOWN INDICATION
     Dosage: 20 MILLIGRAM, QD
     Route: 048
     Dates: start: 20151007
  6. VENLAFAXINE [Suspect]
     Active Substance: VENLAFAXINE HYDROCHLORIDE
     Dosage: 112.5 MILLIGRAM, QD,TABLET
     Route: 048
     Dates: start: 20151008, end: 20151021
  7. DELIX (RAMIPRIL) [Concomitant]
     Active Substance: RAMIPRIL
     Indication: PRODUCT USED FOR UNKNOWN INDICATION
     Dosage: 7.5 MILLIGRAM, QD
     Route: 048
     Dates: start: 20151029
  8. DELIX (RAMIPRIL) [Concomitant]
     Active Substance: RAMIPRIL
     Dosage: 2.5 MILLIGRAM, QD
     Route: 048
     Dates: start: 20150825, end: 20150910
  9. DELIX (RAMIPRIL) [Concomitant]
     Active Substance: RAMIPRIL
     Dosage: 1.25 MILLIGRAM, QD
     Route: 048
     Dates: start: 20150911, end: 20151014
  10. VENLAFAXINE [Suspect]
     Active Substance: VENLAFAXINE HYDROCHLORIDE
     Dosage: 37.5 MILLIGRAM, QD, TABLET
     Route: 048
     Dates: start: 20151003, end: 20151005
  11. DELIX (RAMIPRIL) [Concomitant]
     Active Substance: RAMIPRIL
     Dosage: 2.5 MILLIGRAM, QD
     Route: 048
     Dates: start: 20151015, end: 20151028
  12. TAVOR (LORAZEPAM) [Concomitant]
     Active Substance: LORAZEPAM
     Indication: PRODUCT USED FOR UNKNOWN INDICATION
     Dosage: 1.5 DOSAGE FORM, QD,(1DF-1.5)
     Route: 048
     Dates: start: 20151005, end: 20151104
  13. VENLAFAXINE [Suspect]
     Active Substance: VENLAFAXINE HYDROCHLORIDE
     Dosage: 150 MILLIGRAM, QD,TABLET
     Route: 048
     Dates: start: 20151022, end: 20151023

REACTIONS (11)
  - Renal pain [Unknown]
  - Hypertensive crisis [Unknown]
  - Hypertension [Recovered/Resolved]
  - Dyspnoea exertional [Unknown]
  - Muscle twitching [Unknown]
  - Prescribed overdose [Unknown]
  - Peripheral swelling [Unknown]
  - Suicidal ideation [Unknown]
  - Dysuria [Unknown]
  - Nasopharyngitis [Unknown]
  - Head discomfort [Unknown]

NARRATIVE: CASE EVENT DATE: 20151007
